FAERS Safety Report 8505160-9 (Version None)
Quarter: 2012Q3

REPORT INFORMATION
  Report Type: 
  Country: None (occurrence: None)
  Receive Date: 20120712
  Receipt Date: 20120709
  Transmission Date: 20120928
  Serious: Yes (Hospitalization)
  Sender: FDA-Public Use
  Company Number: PHHY2012FR059520

PATIENT
  Sex: Male

DRUGS (1)
  1. CERTICAN [Suspect]
     Indication: PROPHYLAXIS AGAINST TRANSPLANT REJECTION
     Dosage: 0.75 MG, BID
     Dates: start: 20120501

REACTIONS (7)
  - HYPERPLASIA [None]
  - PARAKERATOSIS [None]
  - ABSCESS [None]
  - RASH [None]
  - ECZEMA [None]
  - SKIN LESION [None]
  - LYMPHOCYTIC INFILTRATION [None]
